FAERS Safety Report 20731553 (Version 2)
Quarter: 2025Q3

REPORT INFORMATION
  Report Type: Spontaneous
  Country: US (occurrence: US)
  Receive Date: 20220420
  Receipt Date: 20250819
  Transmission Date: 20251020
  Serious: No
  Sender: PFIZER
  Company Number: US-PFIZER INC-202101297414

PATIENT
  Age: 25 Year
  Sex: Male

DRUGS (1)
  1. XELJANZ [Suspect]
     Active Substance: TOFACITINIB CITRATE

REACTIONS (7)
  - Drug ineffective [Unknown]
  - Blister [Unknown]
  - Hand dermatitis [Unknown]
  - Asteatosis [Unknown]
  - Eczema [Unknown]
  - Eczema [Unknown]
  - Lichenification [Unknown]
